FAERS Safety Report 6603814-2 (Version None)
Quarter: 2010Q1

REPORT INFORMATION
  Report Type: 
  Country: None (occurrence: None)
  Receive Date: 20100226
  Receipt Date: 20090504
  Transmission Date: 20100710
  Serious: Yes (Other)
  Sender: FDA-Public Use
  Company Number: A0767801A

PATIENT
  Age: 76 Year
  Sex: Female
  Weight: 49.1 kg

DRUGS (6)
  1. LAMICTAL CD [Suspect]
     Dosage: 50MG TWICE PER DAY
     Dates: start: 20080928
  2. ALEVE (CAPLET) [Suspect]
  3. TYLENOL-500 [Suspect]
  4. IBUPROFEN [Suspect]
  5. CYCLOBENZAPRINE [Suspect]
  6. VICODIN [Suspect]

REACTIONS (1)
  - HALLUCINATION, AUDITORY [None]
